FAERS Safety Report 6037923-6 (Version None)
Quarter: 2009Q1

REPORT INFORMATION
  Report Type: 
  Country: None (occurrence: None)
  Receive Date: 20090115
  Receipt Date: 20090109
  Transmission Date: 20090719
  Serious: Yes (Hospitalization)
  Sender: FDA-Public Use
  Company Number: US-RB-008212-09

PATIENT
  Age: 19 Year
  Sex: Male
  Weight: 81 kg

DRUGS (2)
  1. MUCINEX DM [Suspect]
     Dosage: 2 EMPTY BOTTLES FOUND, AMOUNT INGESTED UNKNOWN.
     Route: 048
     Dates: start: 20090107, end: 20090107
  2. CORICIDIN [Suspect]
     Dosage: 4 X 16 COUNT PACKS FOUND, AMOUNT INGESTED UNKNOWN.
     Route: 048
     Dates: start: 20090107, end: 20090107

REACTIONS (5)
  - CONVULSION [None]
  - CYANOSIS [None]
  - DYSPNOEA [None]
  - EYE ROLLING [None]
  - OVERDOSE [None]
